FAERS Safety Report 6135099-8 (Version None)
Quarter: 2009Q1

REPORT INFORMATION
  Report Type: 
  Country: None (occurrence: None)
  Receive Date: 20090327
  Receipt Date: 20090323
  Transmission Date: 20090719
  Serious: Yes (Other)
  Sender: FDA-Public Use
  Company Number: US-JNJFOC-20090306221

PATIENT
  Age: 74 Year
  Sex: Male
  Weight: 95.26 kg

DRUGS (2)
  1. EXTRA STRENGTH TYLENOL [Suspect]
     Route: 048
  2. EXTRA STRENGTH TYLENOL [Suspect]
     Indication: BACK DISORDER
     Route: 048

REACTIONS (1)
  - HEPATIC CIRRHOSIS [None]
